FAERS Safety Report 14224163 (Version 2)
Quarter: 2024Q1

REPORT INFORMATION
  Report Type: Report from Study
  Country: CO (occurrence: CO)
  Receive Date: 20171126
  Receipt Date: 20240313
  Transmission Date: 20240410
  Serious: Yes (Other)
  Sender: FDA-Public Use
  Company Number: PHHY2017CO109912

PATIENT
  Age: 64 Year
  Sex: Female
  Weight: 63 kg

DRUGS (12)
  1. ELTROMBOPAG OLAMINE [Suspect]
     Active Substance: ELTROMBOPAG OLAMINE
     Indication: Thrombocytopenic purpura
     Dosage: 50 MG, QD
     Route: 048
     Dates: start: 20170523
  2. ELTROMBOPAG OLAMINE [Suspect]
     Active Substance: ELTROMBOPAG OLAMINE
     Dosage: 75 MG, QD
     Route: 048
     Dates: start: 20170720
  3. ELTROMBOPAG OLAMINE [Suspect]
     Active Substance: ELTROMBOPAG OLAMINE
     Dosage: 25 MG, TID
     Route: 048
  4. ELTROMBOPAG OLAMINE [Suspect]
     Active Substance: ELTROMBOPAG OLAMINE
     Dosage: 25 MG, TID(3 TABLETS, ORAL, EVERY 24  HOURS FOR 84 DAYS)(252 TABLETS)
     Route: 048
     Dates: start: 20231027
  5. ELTROMBOPAG OLAMINE [Suspect]
     Active Substance: ELTROMBOPAG OLAMINE
     Dosage: 25 MG, TID(3 TABLETS, ORAL, EVERY 24  HOURS FOR 84 DAYS)(252 TABLETS)
     Route: 048
     Dates: start: 20231220
  6. PREDNISOLONE [Suspect]
     Active Substance: PREDNISOLONE
     Indication: Product used for unknown indication
     Dosage: 25 MG, UNK
     Route: 065
  7. PREDNISOLONE [Suspect]
     Active Substance: PREDNISOLONE
     Dosage: 10 MG, QD
     Route: 048
  8. OMEPRAZOLE [Suspect]
     Active Substance: OMEPRAZOLE
     Indication: Product used for unknown indication
     Route: 065
  9. ENALAPRIL [Suspect]
     Active Substance: ENALAPRIL
     Indication: Product used for unknown indication
     Route: 065
  10. AZATHIOPRINE [Concomitant]
     Active Substance: AZATHIOPRINE
     Indication: Product used for unknown indication
     Dosage: UNK
     Route: 065
  11. PREDNISONE [Concomitant]
     Active Substance: PREDNISONE
     Indication: Immune thrombocytopenia
     Dosage: 50 MG, QD(1 TABLET, ORAL, EVERY 24  HOURS, FOR 30 DAYS)(30 TABLETS)
     Route: 048
     Dates: start: 20231027
  12. PREDNISONE [Concomitant]
     Active Substance: PREDNISONE
     Dosage: 50 MG, QD(1 TABLET, ORAL, EVERY 24  HOURS, FOR 30 DAYS)(30 TABLETS)
     Route: 048
     Dates: start: 20231220

REACTIONS (4)
  - Platelet count decreased [Not Recovered/Not Resolved]
  - Ill-defined disorder [Unknown]
  - Gastrointestinal disorder [Unknown]
  - Petechiae [Unknown]

NARRATIVE: CASE EVENT DATE: 20170602
